FAERS Safety Report 9233186 (Version 1)
Quarter: 2013Q1

REPORT INFORMATION
  Report Type: Spontaneous
  Country: US (occurrence: None)
  Receive Date: 20121031
  Receipt Date: 20121031
  Transmission Date: 20140127
  Serious: No
  Sender: FDA-Public Use
  Company Number: PHEH2012US014294

PATIENT
  Age: 42 Year
  Sex: Female
  Weight: 104.33 kg

DRUGS (1)
  1. GILENYA (FTY) CAPSULE, 0.5MG [Suspect]
     Indication: MULTIPLE SCLEROSIS
     Route: 048
     Dates: start: 20120719

REACTIONS (3)
  - Pain in extremity [None]
  - Muscle spasms [None]
  - Vision blurred [None]
